FAERS Safety Report 26052228 (Version 1)
Quarter: 2025Q4

REPORT INFORMATION
  Report Type: Spontaneous
  Country: IN (occurrence: IN)
  Receive Date: 20251117
  Receipt Date: 20251117
  Transmission Date: 20260118
  Serious: Yes (Hospitalization, Other)
  Sender: AMGEN
  Company Number: IN-AMGEN-INDSP2025223232

PATIENT
  Age: 76 Year
  Sex: Male

DRUGS (2)
  1. DENOSUMAB [Suspect]
     Active Substance: DENOSUMAB
     Indication: Hypercalcaemia
     Dosage: 60 MILLIGRAM
     Route: 065
     Dates: start: 2024
  2. DENOSUMAB [Suspect]
     Active Substance: DENOSUMAB
     Indication: Acute kidney injury
     Dosage: 120 MILLIGRAM
     Route: 065
     Dates: start: 2024

REACTIONS (3)
  - Hungry bone syndrome [Recovering/Resolving]
  - Plasma cell myeloma [Unknown]
  - Off label use [Unknown]

NARRATIVE: CASE EVENT DATE: 20240101
